FAERS Safety Report 5367241-0 (Version None)
Quarter: 2007Q2

REPORT INFORMATION
  Report Type: 
  Country: None (occurrence: None)
  Receive Date: 20070622
  Receipt Date: 20070613
  Transmission Date: 20071010
  Serious: Yes (Other)
  Sender: FDA-Public Use
  Company Number: CA-ASTRAZENECA-2007UW14298

PATIENT
  Age: 44 Year
  Sex: Female

DRUGS (6)
  1. ZOLADEX [Suspect]
     Indication: BREAST CANCER
     Route: 058
     Dates: start: 20070401
  2. LIPITOR [Concomitant]
  3. BUPROPRIONE [Concomitant]
  4. IMOVANE [Concomitant]
  5. CALCIUM CHLORIDE [Concomitant]
  6. VITAMIN D [Concomitant]

REACTIONS (2)
  - DYSPNOEA [None]
  - PLEURAL EFFUSION [None]
